FAERS Safety Report 24187008 (Version 1)
Quarter: 2024Q3

REPORT INFORMATION
  Report Type: Report from Study
  Country: US (occurrence: None)
  Receive Date: 20240808
  Receipt Date: 20240808
  Transmission Date: 20241017
  Serious: Yes (Hospitalization)
  Sender: ASTRAZENECA
  Company Number: 2022A200529

PATIENT
  Age: 801 Month
  Sex: Male

DRUGS (1)
  1. FASENRA [Suspect]
     Active Substance: BENRALIZUMAB
     Indication: Asthma
     Route: 058
     Dates: start: 202205

REACTIONS (9)
  - Blood potassium decreased [Recovered/Resolved]
  - Gastrointestinal ulcer haemorrhage [Recovered/Resolved with Sequelae]
  - Chest pain [Recovered/Resolved]
  - Decreased appetite [Recovered/Resolved with Sequelae]
  - Weight decreased [Recovered/Resolved with Sequelae]
  - Dyspnoea [Recovered/Resolved with Sequelae]
  - Restless legs syndrome [Recovered/Resolved with Sequelae]
  - Burning sensation [Recovered/Resolved with Sequelae]
  - Ventricular extrasystoles [Unknown]

NARRATIVE: CASE EVENT DATE: 20220501
